FAERS Safety Report 9911800 (Version 2)
Quarter: 2014Q1

REPORT INFORMATION
  Report Type: Spontaneous
  Country: US (occurrence: US)
  Receive Date: 20140219
  Receipt Date: 20140219
  Transmission Date: 20141002
  Serious: No
  Sender: FDA-Public Use
  Company Number: US-MYLANLABS-2013S1001875

PATIENT
  Age: 55 Year
  Sex: Female

DRUGS (2)
  1. EPIPEN [Suspect]
  2. ALEVE [Concomitant]

REACTIONS (3)
  - Accidental exposure to product [Recovered/Resolved]
  - Product quality issue [Recovered/Resolved]
  - Injection site pain [Recovered/Resolved]
